FAERS Safety Report 7347438-0 (Version None)
Quarter: 2011Q1

REPORT INFORMATION
  Report Type: 
  Country: None (occurrence: None)
  Receive Date: 20110311
  Receipt Date: 20110228
  Transmission Date: 20110831
  Serious: Yes (Hospitalization, Disabling, Other)
  Sender: FDA-Public Use
  Company Number: PHHY2011CN15948

PATIENT
  Age: 39 Year
  Sex: Male
  Weight: 77 kg

DRUGS (4)
  1. SEBIVO [Suspect]
     Indication: HEPATITIS B SURFACE ANTIGEN
     Dosage: 600 MG, QD
     Route: 048
     Dates: start: 20090801
  2. SEBIVO [Suspect]
     Dosage: 600 MG, QD
     Route: 048
     Dates: start: 20100101
  3. SEBIVO [Suspect]
     Indication: HEPATITIS B
     Dosage: 600 MG, QD
     Route: 048
  4. SEBIVO [Suspect]
     Dosage: 600 MG, QD
     Route: 048
     Dates: end: 20110220

REACTIONS (28)
  - HYPOPHAGIA [None]
  - BLOOD URIC ACID INCREASED [None]
  - FATIGUE [None]
  - GAIT DISTURBANCE [None]
  - GASTRITIS [None]
  - VOMITING [None]
  - RENAL IMPAIRMENT [None]
  - BLOOD CREATINE PHOSPHOKINASE INCREASED [None]
  - BLOOD UREA INCREASED [None]
  - MUSCLE ATROPHY [None]
  - NEUROPATHY PERIPHERAL [None]
  - TACHYPNOEA [None]
  - ACID BASE BALANCE ABNORMAL [None]
  - MUSCULOSKELETAL STIFFNESS [None]
  - MYOGLOBIN BLOOD INCREASED [None]
  - MYALGIA [None]
  - BLOOD GASES ABNORMAL [None]
  - ELECTROLYTE IMBALANCE [None]
  - PANCREATITIS [None]
  - WEIGHT DECREASED [None]
  - RHABDOMYOLYSIS [None]
  - MUSCULAR WEAKNESS [None]
  - CHROMATURIA [None]
  - PAIN IN EXTREMITY [None]
  - OLIGURIA [None]
  - BLOOD CREATINE PHOSPHOKINASE MB INCREASED [None]
  - BLOOD LACTATE DEHYDROGENASE INCREASED [None]
  - ABDOMINAL PAIN UPPER [None]
